FAERS Safety Report 8780041 (Version 1)
Quarter: 2012Q4

REPORT INFORMATION
  Report Type: Spontaneous
  Country: US (occurrence: None)
  Receive Date: 20120831
  Receipt Date: 20120831
  Transmission Date: 20130627
  Serious: Yes (Life-Threatening, Hospitalization)
  Sender: FDA-Public Use
  Company Number: None

PATIENT
  Age: 39 Year
  Sex: Female
  Weight: 79.38 kg

DRUGS (3)
  1. MAXALT [Suspect]
     Route: 048
  2. COMBIVIR [Concomitant]
  3. KALETRA [Concomitant]

REACTIONS (1)
  - Pulmonary embolism [None]
